FAERS Safety Report 19443929 (Version 1)
Quarter: 2021Q2

REPORT INFORMATION
  Report Type: Report from Study
  Country: ES (occurrence: ES)
  Receive Date: 20210621
  Receipt Date: 20210621
  Transmission Date: 20210717
  Serious: Yes (Other)
  Sender: FDA-Public Use
  Company Number: ES-PFIZER INC-2019-06723

PATIENT
  Sex: Female
  Weight: 40.7 kg

DRUGS (38)
  1. ENCORAFENIB [Suspect]
     Active Substance: ENCORAFENIB
     Indication: COLORECTAL CANCER METASTATIC
     Dosage: 45 MG, 1X/DAY
     Route: 048
     Dates: start: 20190313
  2. INSULIN [Concomitant]
     Active Substance: INSULIN NOS
     Indication: HYPERGLYCAEMIA
     Dosage: UNK, 2X/DAY
     Route: 058
     Dates: start: 20190327
  3. ZIVEREL [Concomitant]
     Indication: REFLUX GASTRITIS
     Dosage: 10 ML, 3X/DAY
     Route: 048
     Dates: start: 20190320
  4. IRON [Concomitant]
     Active Substance: IRON
     Indication: IRON DEFICIENCY ANAEMIA
     Dosage: 20 MG/DL, AS NEEDED
     Route: 042
     Dates: start: 20190718
  5. METFORMIN [Concomitant]
     Active Substance: METFORMIN HYDROCHLORIDE
     Indication: TYPE 2 DIABETES MELLITUS
     Dosage: 1000 MG, 2X/DAY
     Route: 048
  6. VILDAGLIPTINA [Concomitant]
     Active Substance: VILDAGLIPTIN
     Indication: TYPE 2 DIABETES MELLITUS
     Dosage: 50 MG, BID (ONCE EVERY 12 HOURS)
     Route: 048
  7. GABAPENTINE [Concomitant]
     Active Substance: GABAPENTIN
     Indication: TUMOUR PAIN
     Dosage: 100 MG, DAILY
     Route: 048
     Dates: start: 20190225
  8. DOXICYCLINE [DOXYCYCLINE] [Concomitant]
     Active Substance: DOXYCYCLINE
     Indication: PROPHYLAXIS
     Dosage: 100 MG, DAILY
     Dates: start: 20190313, end: 20190322
  9. CETUXIMAB. [Suspect]
     Active Substance: CETUXIMAB
     Indication: COLORECTAL CANCER METASTATIC
     Dosage: 500 MG/M2, EVERY 2 WEEKS
     Route: 042
     Dates: start: 20191024
  10. HIDROFEROL [Concomitant]
     Active Substance: CALCIFEDIOL
  11. ENALAPRIL [Concomitant]
     Active Substance: ENALAPRIL
     Indication: HYPERTENSION
     Dosage: 5 MG, DAILY
     Route: 048
  12. SIMVASTATINA [Concomitant]
     Active Substance: SIMVASTATIN
     Indication: DYSLIPIDAEMIA
     Dosage: 10 MG, DAILY
     Route: 048
  13. ONDANSETRON [Concomitant]
     Active Substance: ONDANSETRON
     Indication: PROPHYLAXIS
     Dosage: 8 MG, CYCLIC
     Route: 042
     Dates: start: 20190313
  14. PARACETAMOL [Concomitant]
     Active Substance: ACETAMINOPHEN
  15. SEVREDOL [Concomitant]
     Active Substance: MORPHINE
     Indication: TUMOUR PAIN
     Dosage: 10 MG, AS NEEDED
     Route: 048
     Dates: start: 20190201
  16. BINIMETINIB [Suspect]
     Active Substance: BINIMETINIB
     Indication: COLORECTAL CANCER METASTATIC
     Dosage: 45 MG, 2X/DAY (ONCE EVERY 12 HOURS)
     Route: 048
     Dates: start: 20190313
  17. PANTOPRAZOLE [Concomitant]
     Active Substance: PANTOPRAZOLE
     Indication: PROPHYLAXIS
     Dosage: 40 MG, DAILY
     Route: 048
     Dates: start: 20190320
  18. DEXAMETHASONE. [Concomitant]
     Active Substance: DEXAMETHASONE
     Indication: PROPHYLAXIS
     Dosage: 4 MG, PER 8H
     Route: 042
     Dates: start: 20190313
  19. SURVIMED OPD [Concomitant]
     Dosage: UNK
     Route: 065
  20. ELOCOM [Concomitant]
     Active Substance: MOMETASONE FUROATE
     Indication: DRY SKIN
     Dosage: 45 MG, ONCE EVERY 12 HOURS
     Route: 061
     Dates: start: 20190327
  21. ERYTHROMYCINE [ERYTHROMYCIN LACTOBIONATE] [Concomitant]
     Indication: DRY SKIN
     Dosage: 20 MG, BID (2/DAY)
     Route: 061
     Dates: start: 20190327
  22. DEXAMETHASONE. [Concomitant]
     Active Substance: DEXAMETHASONE
     Dosage: 4 MG, DAILY
     Route: 048
     Dates: start: 20190326, end: 20190328
  23. MICOSTATIN [Concomitant]
     Indication: MUCOSAL INFLAMMATION
     Dosage: 100000 IU/ML PRN
     Route: 048
     Dates: start: 20190322
  24. MAGNESIUM [Concomitant]
     Active Substance: MAGNESIUM
     Indication: HYPOMAGNESAEMIA
     Dosage: 97.25 MG, 3X/DAY
     Route: 048
     Dates: start: 20190404
  25. DEXAMETHASONE. [Concomitant]
     Active Substance: DEXAMETHASONE
     Indication: NAUSEA
     Dosage: 4 MG, 3X/DAY
     Route: 048
     Dates: start: 20190320, end: 20190322
  26. DEXAMETHASONE. [Concomitant]
     Active Substance: DEXAMETHASONE
     Dosage: 4 MG, 2X/DAY
     Route: 048
     Dates: start: 20190323, end: 20190325
  27. FORTASEC [LOPERAMIDE HYDROCHLORIDE] [Concomitant]
     Active Substance: LOPERAMIDE HYDROCHLORIDE
     Indication: DIARRHOEA
     Dosage: 2 MG, AS NEEDED
     Route: 048
     Dates: start: 20190327
  28. METAMIZOLE [Concomitant]
     Active Substance: METAMIZOLE
  29. RESINCOLESTIRAMINA [Concomitant]
     Indication: DIARRHOEA
     Dosage: 4 G, AS NEEDED
     Route: 048
     Dates: start: 20190404
  30. ONDANSETRON DCI [ONDANSETRON HYDROCHLORIDE] [Concomitant]
     Indication: NAUSEA
     Dosage: 4 MG, 3X/DAY
     Route: 048
     Dates: start: 20190320, end: 20190411
  31. DEXAMETHASONE. [Concomitant]
     Active Substance: DEXAMETHASONE
     Dosage: 4 MG, DAILY
     Route: 048
     Dates: start: 20190329, end: 20190331
  32. VENOFER [Concomitant]
     Active Substance: IRON SUCROSE
     Indication: IRON DEFICIENCY ANAEMIA
     Dosage: 20 MG, ONCE
     Dates: start: 20190718, end: 20190718
  33. MOMETASONE [Concomitant]
     Active Substance: MOMETASONE
  34. RESINCOLESTIRAMINA [Concomitant]
     Dosage: 4 G, DAILY
     Route: 048
     Dates: start: 20190404
  35. INDAPAMIDE. [Concomitant]
     Active Substance: INDAPAMIDE
     Indication: HYPERTENSION
     Dosage: 1.25 MG, DAILY
     Route: 048
  36. METOCLOPRAMIDE. [Concomitant]
     Active Substance: METOCLOPRAMIDE
     Indication: NAUSEA
     Dosage: 10 MG, 3X/DAY
     Route: 048
     Dates: start: 20190320
  37. RANITIDINE. [Concomitant]
     Active Substance: RANITIDINE
     Indication: PROPHYLAXIS
     Dosage: 50 MG
     Route: 042
     Dates: start: 20190313
  38. DEXCLORFENIRAMINA [Concomitant]
     Active Substance: DEXCHLORPHENIRAMINE
     Indication: PROPHYLAXIS
     Dosage: 4 MG
     Route: 042
     Dates: start: 20190313

REACTIONS (1)
  - Lymph node tuberculosis [Recovered/Resolved]

NARRATIVE: CASE EVENT DATE: 20191029
